FAERS Safety Report 6915482-0 (Version None)
Quarter: 2010Q3

REPORT INFORMATION
  Report Type: 
  Country: None (occurrence: None)
  Receive Date: 20100809
  Receipt Date: 20090610
  Transmission Date: 20110219
  Serious: No
  Sender: FDA-Public Use
  Company Number: US-ABBOTT-09P-163-0579246-00

PATIENT
  Sex: Male
  Weight: 97.61 kg

DRUGS (7)
  1. DEPAKOTE ER [Suspect]
     Indication: CLUSTER HEADACHE
     Dates: start: 20090101, end: 20090201
  2. DEPAKOTE ER [Suspect]
     Dates: start: 20090201
  3. CRESTOR [Concomitant]
     Indication: PRODUCT USED FOR UNKNOWN INDICATION
  4. PLAVIX [Concomitant]
     Indication: PRODUCT USED FOR UNKNOWN INDICATION
  5. FLOMAX [Concomitant]
     Indication: PROSTATIC DISORDER
  6. AVODART [Concomitant]
     Indication: PROSTATIC DISORDER
  7. ASPIRIN [Concomitant]
     Indication: PRODUCT USED FOR UNKNOWN INDICATION

REACTIONS (2)
  - DISTURBANCE IN ATTENTION [None]
  - LETHARGY [None]
